FAERS Safety Report 8972957 (Version 1)
Quarter: 2012Q4

REPORT INFORMATION
  Report Type: 
  Country: FR (occurrence: FR)
  Receive Date: 20121218
  Receipt Date: 20121218
  Transmission Date: 20130627
  Serious: Yes (Life-Threatening, Hospitalization, Other)
  Sender: FDA-Public Use
  Company Number: FR-009507513-1106FRA00021

PATIENT
  Sex: Male
  Weight: 91.5 kg

DRUGS (11)
  1. JANUVIA [Suspect]
     Indication: TYPE 2 DIABETES MELLITUS
     Dosage: 100 mg, qd
     Route: 048
     Dates: start: 200910
  2. ACTOS [Suspect]
     Indication: TYPE 2 DIABETES MELLITUS
     Dosage: 30 mg, qd
     Route: 048
     Dates: start: 200603, end: 201002
  3. LIPANTHYL [Suspect]
     Indication: HYPERTRIGLYCERIDAEMIA
     Dosage: 200 mg, qd
     Route: 048
  4. DIAMICRON [Suspect]
     Indication: TYPE 2 DIABETES MELLITUS
     Dosage: 30 mg, qd
     Route: 048
  5. ZYLORIC [Suspect]
     Indication: HYPERURICAEMIA
     Dosage: 300 mg, qd
     Route: 048
  6. MINIRIN [Suspect]
     Indication: DIABETES INSIPIDUS
     Dosage: 100 ?g, UNK
     Route: 048
     Dates: start: 1995
  7. COVERSYL [Suspect]
     Indication: CONGESTIVE CARDIOMYOPATHY
     Dosage: 2.5 mg, qd
     Route: 048
     Dates: start: 200912
  8. CARDENSIEL [Suspect]
     Indication: CONGESTIVE CARDIOMYOPATHY
     Dosage: 2.5 mg, qd
     Route: 048
     Dates: start: 200912
  9. KARDEGIC [Suspect]
     Indication: CONGESTIVE CARDIOMYOPATHY
     Dosage: 75 mg, qd
     Route: 048
     Dates: start: 200912
  10. KAYEXALATE [Suspect]
     Indication: HYPERKALAEMIA
     Dosage: 1 DF, QOW
     Route: 048
     Dates: start: 201005
  11. PRAZOSIN [Suspect]
     Indication: HYPERTENSION
     Dosage: 5 mg, qd
     Dates: end: 201002

REACTIONS (7)
  - Bladder cancer stage II [Recovered/Resolved with Sequelae]
  - Congestive cardiomyopathy [None]
  - Hypertriglyceridaemia [None]
  - Hyperkalaemia [None]
  - Hyperuricaemia [None]
  - Hypertension [None]
  - Peritonitis [None]
